FAERS Safety Report 12331798 (Version 1)
Quarter: 2016Q2

REPORT INFORMATION
  Report Type: Spontaneous
  Country: US (occurrence: US)
  Receive Date: 20160504
  Receipt Date: 20160504
  Transmission Date: 20160815
  Serious: No
  Sender: FDA-Public Use
  Company Number: US-ROCHE-1642824

PATIENT
  Sex: Female
  Weight: 72.64 kg

DRUGS (4)
  1. ESBRIET [Suspect]
     Active Substance: PIRFENIDONE
     Indication: IDIOPATHIC PULMONARY FIBROSIS
     Dosage: 3 CAPSULES BY MOUTH 3
     Route: 048
     Dates: start: 20150916
  2. PREDNISONE. [Concomitant]
     Active Substance: PREDNISONE
  3. IMURAN [Concomitant]
     Active Substance: AZATHIOPRINE
  4. COZAAR [Concomitant]
     Active Substance: LOSARTAN POTASSIUM
     Route: 065

REACTIONS (5)
  - Hypotension [Unknown]
  - Feeding disorder [Unknown]
  - Benign neoplasm [Unknown]
  - Diarrhoea [Unknown]
  - Nausea [Unknown]
